FAERS Safety Report 18949706 (Version 1)
Quarter: 2021Q1

REPORT INFORMATION
  Report Type: Spontaneous
  Country: US (occurrence: US)
  Receive Date: 20210227
  Receipt Date: 20210227
  Transmission Date: 20210420
  Serious: No
  Sender: FDA-Public Use
  Company Number: US-ROCHE-2590218

PATIENT
  Sex: Female
  Weight: 52.21 kg

DRUGS (11)
  1. AFRIN [Concomitant]
     Active Substance: OXYMETAZOLINE
     Indication: RESPIRATORY TRACT INFECTION
  2. FLONASE [Concomitant]
     Active Substance: FLUTICASONE PROPIONATE
     Route: 045
  3. PREDNISONE. [Concomitant]
     Active Substance: PREDNISONE
     Indication: RESPIRATORY TRACT INFECTION
  4. PREDNISONE. [Concomitant]
     Active Substance: PREDNISONE
     Indication: BRONCHITIS
  5. ZITHROMAX [Concomitant]
     Active Substance: AZITHROMYCIN DIHYDRATE
     Indication: BRONCHITIS
  6. AZELASTINE. [Concomitant]
     Active Substance: AZELASTINE HYDROCHLORIDE
     Indication: ASTHMA
     Dosage: TWO SPRAYS IN EACH NOSTRIL TWICE A DAY AS NEEDED ;ONGOING: YES
     Route: 045
  7. SINGULAIR [Concomitant]
     Active Substance: MONTELUKAST SODIUM
     Indication: ASTHMA
     Dosage: ONE TABLET DAILY IN THE EVENING ;ONGOING: YES
     Route: 048
  8. ZITHROMAX [Concomitant]
     Active Substance: AZITHROMYCIN DIHYDRATE
     Indication: RESPIRATORY TRACT INFECTION
  9. ZYRTEC (UNITED STATES) [Concomitant]
     Dosage: OTC DOSE, ONE TABLET EACH NIGHT ;ONGOING: YES
     Route: 048
  10. WIXELA INHUB [Concomitant]
     Active Substance: FLUTICASONE PROPIONATE\SALMETEROL XINAFOATE
     Indication: ASTHMA
     Dosage: 500/50; ONE PUFF QAM AND ONE PUFF QPM ;ONGOING: YES
     Route: 055
  11. XOLAIR [Suspect]
     Active Substance: OMALIZUMAB
     Indication: ASTHMA
     Dosage: ^LOWER DOSE^ ;ONGOING: YES
     Route: 058
     Dates: start: 20150312

REACTIONS (1)
  - Bronchitis [Recovered/Resolved]
